FAERS Safety Report 25517873 (Version 2)
Quarter: 2025Q3

REPORT INFORMATION
  Report Type: Spontaneous
  Country: CA (occurrence: CA)
  Receive Date: 20250704
  Receipt Date: 20250809
  Transmission Date: 20251020
  Serious: Yes (Hospitalization, Other)
  Sender: ALEXION PHARMACEUTICALS
  Company Number: CA-AstraZeneca-2021A440934

PATIENT
  Age: 70 Year
  Sex: Female
  Weight: 72.64 kg

DRUGS (7)
  1. ROSUVASTATIN [Suspect]
     Active Substance: ROSUVASTATIN
     Indication: Chest pain
     Dosage: 40 MILLIGRAM, QD
     Route: 065
     Dates: start: 202011
  2. ASPIRIN [Suspect]
     Active Substance: ASPIRIN
     Indication: Chest pain
     Dosage: 81 MILLIGRAM, QD
     Route: 065
     Dates: start: 202011
  3. BISOPROLOL [Suspect]
     Active Substance: BISOPROLOL
     Indication: Chest pain
     Dosage: 5 MILLIGRAM, QD
     Route: 065
     Dates: start: 202011
  4. CLOPIDOGREL [Suspect]
     Active Substance: CLOPIDOGREL BISULFATE
     Indication: Chest pain
     Dosage: 75 MILLIGRAM, QD
     Route: 065
     Dates: start: 202011
  5. NITROGLYCERIN [Suspect]
     Active Substance: NITROGLYCERIN
     Indication: Chest pain
     Route: 065
  6. STELARA [Suspect]
     Active Substance: USTEKINUMAB
     Indication: Crohn^s disease
  7. STELARA [Suspect]
     Active Substance: USTEKINUMAB

REACTIONS (5)
  - Headache [Unknown]
  - Fatigue [Unknown]
  - Chest pain [Recovered/Resolved]
  - Diarrhoea [Recovered/Resolved]
  - Diverticulitis [Recovered/Resolved]
